FAERS Safety Report 15479242 (Version 1)
Quarter: 2018Q4

REPORT INFORMATION
  Report Type: Spontaneous
  Country: US (occurrence: US)
  Receive Date: 20181009
  Receipt Date: 20181009
  Transmission Date: 20190205
  Serious: No
  Sender: FDA-Public Use
  Company Number: US-KALEO, INC.-2018KL000020

PATIENT
  Age: 14 Year
  Sex: Female

DRUGS (2)
  1. STEROIDS [Suspect]
     Active Substance: UNSPECIFIED INGREDIENT
     Indication: ANAPHYLACTIC REACTION
     Dates: start: 20180223, end: 20180223
  2. AUVI-Q [Suspect]
     Active Substance: EPINEPHRINE
     Indication: ANAPHYLACTIC REACTION
     Dates: start: 20180223, end: 20180223

REACTIONS (2)
  - Feeling jittery [Recovered/Resolved]
  - Panic attack [Recovered/Resolved]

NARRATIVE: CASE EVENT DATE: 20180223
